FAERS Safety Report 16364058 (Version 1)
Quarter: 2019Q2

REPORT INFORMATION
  Report Type: Spontaneous
  Country: AT (occurrence: AT)
  Receive Date: 20190528
  Receipt Date: 20190528
  Transmission Date: 20190711
  Serious: Yes (Hospitalization, Other)
  Sender: FDA-Public Use
  Company Number: AT-PFIZER INC-2019218072

PATIENT
  Age: 55 Year
  Sex: Male

DRUGS (1)
  1. PIROXICAM. [Suspect]
     Active Substance: PIROXICAM
     Indication: CHRONIC OBSTRUCTIVE PULMONARY DISEASE

REACTIONS (5)
  - Dyspnoea [Unknown]
  - Adenocarcinoma [Unknown]
  - Infectious pleural effusion [Unknown]
  - Idiopathic pulmonary fibrosis [Unknown]
  - Forced vital capacity decreased [Unknown]

NARRATIVE: CASE EVENT DATE: 201703
